FAERS Safety Report 10690174 (Version 1)
Quarter: 2015Q1

REPORT INFORMATION
  Report Type: Spontaneous
  Country: US (occurrence: None)
  Receive Date: 20150102
  Receipt Date: 20150102
  Transmission Date: 20150720
  Serious: Yes (Hospitalization)
  Sender: FDA-Public Use
  Company Number: None

PATIENT
  Age: 64 Year
  Sex: Female
  Weight: 104 kg

DRUGS (1)
  1. BEVACIZUMAB [Suspect]
     Active Substance: BEVACIZUMAB
     Dates: end: 20141209

REACTIONS (7)
  - Condition aggravated [None]
  - Mobility decreased [None]
  - Muscular weakness [None]
  - Head injury [None]
  - Cerebral haemorrhage [None]
  - Activities of daily living impaired [None]
  - Fall [None]

NARRATIVE: CASE EVENT DATE: 20141222
